FAERS Safety Report 9734320 (Version 1)
Quarter: 2013Q4

REPORT INFORMATION
  Report Type: Report from Study
  Country: CA (occurrence: CA)
  Receive Date: 20131206
  Receipt Date: 20131206
  Transmission Date: 20140711
  Serious: Yes (Hospitalization)
  Sender: FDA-Public Use
  Company Number: CA-ROCHE-1314640

PATIENT
  Age: 64 Year
  Sex: Male

DRUGS (3)
  1. RANIBIZUMAB [Suspect]
     Indication: PRODUCT USED FOR UNKNOWN INDICATION
     Route: 050
     Dates: start: 20111112
  2. RANIBIZUMAB [Suspect]
     Route: 050
     Dates: start: 20120824
  3. INSULIN [Concomitant]
     Route: 065
     Dates: start: 1981

REACTIONS (2)
  - Ketoacidosis [Unknown]
  - Pneumonia [Recovered/Resolved]
